FAERS Safety Report 25984454 (Version 1)
Quarter: 2025Q4

REPORT INFORMATION
  Report Type: Spontaneous
  Country: US (occurrence: None)
  Receive Date: 20251031
  Receipt Date: 20251031
  Transmission Date: 20260118
  Serious: No
  Sender: FDA-CTU
  Company Number: None

PATIENT
  Age: 66 Year
  Sex: Female

DRUGS (1)
  1. DULOXETINE [Suspect]
     Active Substance: DULOXETINE
     Dosage: 20 MG AT BEDTIME ORAL
     Route: 048
     Dates: start: 20251024, end: 20251026

REACTIONS (1)
  - Impaired driving ability [None]

NARRATIVE: CASE EVENT DATE: 20251026
